FAERS Safety Report 5167331-1 (Version None)
Quarter: 2006Q4

REPORT INFORMATION
  Report Type: 
  Country: None (occurrence: None)
  Receive Date: 20061130
  Receipt Date: 20061117
  Transmission Date: 20070319
  Serious: Yes (Other)
  Sender: FDA-Public Use
  Company Number: 2006144499

PATIENT
  Age: 55 Year
  Sex: Female

DRUGS (4)
  1. LYRICA [Suspect]
     Indication: DIABETIC NEUROPATHY
     Dosage: 25 MG (25 MG,1 IN 1 D)
  2. LYRICA [Suspect]
     Indication: NEURALGIA
     Dosage: 25 MG (25 MG,1 IN 1 D)
  3. ANTIDEPRESSANTS [Concomitant]
  4. ALL OTHER THERAPEUTIC PRODUCTS [Concomitant]

REACTIONS (1)
  - PAIN IN EXTREMITY [None]
